FAERS Safety Report 10915646 (Version 1)
Quarter: 2015Q1

REPORT INFORMATION
  Report Type: Spontaneous
  Country: IL (occurrence: None)
  Receive Date: 20150311
  Receipt Date: 20150311
  Transmission Date: 20150721
  Serious: Yes (Hospitalization)
  Sender: FDA-Public Use
  Company Number: None

PATIENT
  Age: 69 Year
  Sex: Female
  Weight: 80 kg

DRUGS (2)
  1. DAUNORUBICIN [Suspect]
     Active Substance: DAUNORUBICIN
     Dates: end: 20120407
  2. CYTARABINE. [Suspect]
     Active Substance: CYTARABINE
     Dates: end: 20120411

REACTIONS (1)
  - Neutropenia [None]

NARRATIVE: CASE EVENT DATE: 20120406
